FAERS Safety Report 18515176 (Version 2)
Quarter: 2021Q1

REPORT INFORMATION
  Report Type: Spontaneous
  Country: US (occurrence: US)
  Receive Date: 20201118
  Receipt Date: 20210301
  Transmission Date: 20210419
  Serious: Yes (Hospitalization)
  Sender: FDA-Public Use
  Company Number: US-GLOBAL BLOOD THERAPEUTICS INC-US-GBT-20-03653

PATIENT
  Age: 13 Year
  Sex: Male

DRUGS (3)
  1. OXBRYTA [Suspect]
     Active Substance: VOXELOTOR
     Indication: SICKLE CELL DISEASE
  2. VITAMIN D3 [Concomitant]
     Active Substance: CHOLECALCIFEROL
     Indication: PRODUCT USED FOR UNKNOWN INDICATION
     Dosage: NOT PROVIDED
  3. OXBRYTA [Suspect]
     Active Substance: VOXELOTOR
     Indication: SICKLE CELL DISEASE
     Route: 048
     Dates: start: 20200317, end: 202102

REACTIONS (6)
  - Acute chest syndrome [Recovered/Resolved]
  - Sickle cell anaemia with crisis [Not Recovered/Not Resolved]
  - Renal disorder [Unknown]
  - Drug hypersensitivity [Unknown]
  - Sickle cell anaemia with crisis [Recovered/Resolved]
  - Haematuria [Unknown]

NARRATIVE: CASE EVENT DATE: 20201016
